FAERS Safety Report 6842477-8 (Version None)
Quarter: 2010Q3

REPORT INFORMATION
  Report Type: 
  Country: None (occurrence: None)
  Receive Date: 20100714
  Receipt Date: 20080118
  Transmission Date: 20110219
  Serious: No
  Sender: FDA-Public Use
  Company Number: US-PFIZER INC-2007062674

PATIENT
  Sex: Male
  Weight: 85.3 kg

DRUGS (2)
  1. CHANTIX [Suspect]
     Indication: SMOKING CESSATION THERAPY
     Dates: start: 20070719
  2. SEPTRA [Concomitant]

REACTIONS (8)
  - ABNORMAL DREAMS [None]
  - FEELING HOT [None]
  - HEADACHE [None]
  - HEPATIC ENZYME ABNORMAL [None]
  - INSOMNIA [None]
  - NERVOUSNESS [None]
  - SWELLING FACE [None]
  - TREMOR [None]
